FAERS Safety Report 20343459 (Version 1)
Quarter: 2022Q1

REPORT INFORMATION
  Report Type: Spontaneous
  Country: FR (occurrence: FR)
  Receive Date: 20220118
  Receipt Date: 20220118
  Transmission Date: 20220423
  Serious: Yes (Hospitalization)
  Sender: FDA-Public Use
  Company Number: FR-AFSSAPS-AVCN20211858

PATIENT
  Age: 16 Year
  Sex: Male

DRUGS (3)
  1. ACETAMINOPHEN [Suspect]
     Active Substance: ACETAMINOPHEN
     Indication: Product used for unknown indication
     Dosage: 40 GRAMS
     Route: 065
     Dates: start: 20190917, end: 20190917
  2. CANNABIS SATIVA SUBSP. INDICA TOP [Suspect]
     Active Substance: CANNABIS SATIVA SUBSP. INDICA TOP
     Indication: Product used for unknown indication
     Dosage: 10 DOSAGE FORM, DAILY
     Route: 065
     Dates: start: 2012
  3. OXAZEPAM [Suspect]
     Active Substance: OXAZEPAM
     Indication: Product used for unknown indication
     Dosage: 10 DOSAGE FORM
     Route: 065
     Dates: start: 20190917, end: 20190917

REACTIONS (5)
  - Prothrombin time ratio decreased [Recovered/Resolved]
  - Drug abuse [Recovered/Resolved with Sequelae]
  - Toxicity to various agents [Recovered/Resolved]
  - Hepatic cytolysis [Recovering/Resolving]
  - Suicidal ideation [Not Recovered/Not Resolved]

NARRATIVE: CASE EVENT DATE: 20190917
